FAERS Safety Report 8625111-6 (Version None)
Quarter: 2012Q3

REPORT INFORMATION
  Report Type: 
  Country: None (occurrence: None)
  Receive Date: 20120827
  Receipt Date: 20120814
  Transmission Date: 20120928
  Serious: Yes (Hospitalization, Congenital Anomaly)
  Sender: FDA-Public Use
  Company Number: US-GLAXOSMITHKLINE-A0990830A

PATIENT
  Sex: Female

DRUGS (2)
  1. PAXIL [Suspect]
     Indication: PRODUCT USED FOR UNKNOWN INDICATION
     Route: 064
     Dates: end: 19980101
  2. PHENERGAN HCL [Concomitant]
     Indication: VOMITING IN PREGNANCY
     Route: 064

REACTIONS (4)
  - CONGENITAL CORONARY ARTERY MALFORMATION [None]
  - PARTIAL SEIZURES [None]
  - FOETAL EXPOSURE DURING PREGNANCY [None]
  - SCOLIOSIS [None]
